FAERS Safety Report 14347033 (Version 1)
Quarter: 2018Q1

REPORT INFORMATION
  Report Type: Spontaneous
  Country: BR (occurrence: BR)
  Receive Date: 20180103
  Receipt Date: 20180103
  Transmission Date: 20180509
  Serious: Yes (Hospitalization)
  Sender: FDA-Public Use
  Company Number: BR-PFIZER INC-2017552425

PATIENT
  Age: 77 Year
  Sex: Male

DRUGS (3)
  1. CARVEDILOL. [Concomitant]
     Active Substance: CARVEDILOL
  2. ASPIRIN /00002701/ [Concomitant]
     Active Substance: ASPIRIN
  3. EFFEXOR XR [Suspect]
     Active Substance: VENLAFAXINE HYDROCHLORIDE
     Indication: DEPRESSION
     Dosage: TWO TABLETS OF 75MG (150 MG), DAILY

REACTIONS (8)
  - Stress [Recovered/Resolved]
  - Hyperhidrosis [Recovered/Resolved]
  - Somnolence [Recovered/Resolved]
  - Blood test abnormal [Recovered/Resolved]
  - Apathy [Recovered/Resolved]
  - Feeling hot [Recovered/Resolved]
  - Drug ineffective [Not Recovered/Not Resolved]
  - Daydreaming [Recovered/Resolved]

NARRATIVE: CASE EVENT DATE: 2013
